FAERS Safety Report 25895447 (Version 3)
Quarter: 2025Q4

REPORT INFORMATION
  Report Type: Report from Study
  Country: US (occurrence: US)
  Receive Date: 20251008
  Receipt Date: 20251116
  Transmission Date: 20260118
  Serious: Yes (Hospitalization)
  Sender: NOVARTIS
  Company Number: US-002147023-NVSC2025US155426

PATIENT
  Sex: Male

DRUGS (3)
  1. KESIMPTA [Suspect]
     Active Substance: OFATUMUMAB
     Indication: Multiple sclerosis
     Dosage: 20 MG, QW (FOR 3 WEEKS)
     Route: 058
     Dates: start: 20250827
  2. KESIMPTA [Suspect]
     Active Substance: OFATUMUMAB
     Dosage: 20 MG, QMO
     Route: 058
  3. KESIMPTA [Suspect]
     Active Substance: OFATUMUMAB
     Dosage: 20 MG, OTHER, (ONCE A WEEK FOR 3 WEEKS, SKIP A WEEK, THEN START MONTHLY)
     Route: 058

REACTIONS (8)
  - Pyrexia [Recovered/Resolved]
  - Decreased immune responsiveness [Unknown]
  - Hypersensitivity [Recovered/Resolved]
  - Nasal congestion [Unknown]
  - Nasopharyngitis [Unknown]
  - Respiratory disorder [Unknown]
  - Fatigue [Unknown]
  - Malaise [Unknown]
